FAERS Safety Report 7683883-1 (Version None)
Quarter: 2011Q3

REPORT INFORMATION
  Report Type: 
  Country: None (occurrence: None)
  Receive Date: 20110815
  Receipt Date: 20110802
  Transmission Date: 20111222
  Serious: Yes (Other)
  Sender: FDA-Public Use
  Company Number: FR-GENENTECH-318745

PATIENT
  Sex: Female
  Weight: 48 kg

DRUGS (5)
  1. XOLAIR [Suspect]
     Indication: ASTHMA
     Route: 065
  2. SINGULAIR [Concomitant]
     Indication: PRODUCT USED FOR UNKNOWN INDICATION
  3. BECLOMETHASONE DIPROPIONATE [Concomitant]
     Indication: PRODUCT USED FOR UNKNOWN INDICATION
  4. FORADIL [Concomitant]
     Indication: PRODUCT USED FOR UNKNOWN INDICATION
  5. SPIRIVA [Concomitant]
     Indication: PRODUCT USED FOR UNKNOWN INDICATION

REACTIONS (2)
  - EPILEPSY [None]
  - ASTHMA [None]
